FAERS Safety Report 16227069 (Version 1)
Quarter: 2019Q2

REPORT INFORMATION
  Report Type: Spontaneous
  Country: US (occurrence: US)
  Receive Date: 20190423
  Receipt Date: 20190423
  Transmission Date: 20190711
  Serious: No
  Sender: FDA-Public Use
  Company Number: US-BIOGEN-2019BI00727930

PATIENT

DRUGS (1)
  1. AVONEX [Suspect]
     Active Substance: INTERFERON BETA-1A
     Indication: MULTIPLE SCLEROSIS
     Dosage: DRUG WITHDRAWN ON AN UNKNOWN DATE IN OCT-2018 OR NOV-2018
     Route: 065
     Dates: end: 2018

REACTIONS (1)
  - Multiple sclerosis relapse [Unknown]
